FAERS Safety Report 4689499-3 (Version None)
Quarter: 2005Q2

REPORT INFORMATION
  Report Type: 
  Country: None (occurrence: None)
  Receive Date: 20050608
  Receipt Date: 20050225
  Transmission Date: 20051028
  Serious: No
  Sender: FDA-Public Use
  Company Number: 2005-BP-03115BP

PATIENT
  Age: 70 Year
  Sex: Female

DRUGS (7)
  1. SPIRIVA [Suspect]
     Indication: CHRONIC OBSTRUCTIVE PULMONARY DISEASE
     Dosage: 18 MCG (18 MCG, QD), IH
     Route: 055
     Dates: start: 20050201, end: 20050225
  2. SINGULAIR [Concomitant]
  3. ADVAIR DISKUS 100/50 [Concomitant]
  4. ALLEGRA [Concomitant]
  5. LIPITOR [Concomitant]
  6. NORVASC [Concomitant]
  7. DIOVAN [Concomitant]

REACTIONS (1)
  - ABDOMINAL PAIN [None]
